FAERS Safety Report 4834012-0 (Version None)
Quarter: 2005Q4

REPORT INFORMATION
  Report Type: 
  Country: None (occurrence: None)
  Receive Date: 20051118
  Receipt Date: 20051107
  Transmission Date: 20060501
  Serious: Yes (Death)
  Sender: FDA-Public Use
  Company Number: 2005-BP-19724RO

PATIENT
  Age: 15 Month
  Sex: Female

DRUGS (1)
  1. FLECAINIDE ACETATE [Suspect]

REACTIONS (3)
  - ACCIDENTAL DRUG INTAKE BY CHILD [None]
  - CARDIAC ARREST [None]
  - MULTIPLE DRUG OVERDOSE [None]
